FAERS Safety Report 25155887 (Version 3)
Quarter: 2025Q3

REPORT INFORMATION
  Report Type: Spontaneous
  Country: EU (occurrence: EU)
  Receive Date: 20250403
  Receipt Date: 20250707
  Transmission Date: 20251021
  Serious: Yes (Hospitalization, Other)
  Sender: PFIZER
  Company Number: EU-PFIZER INC-PV202500039983

PATIENT
  Age: 14 Year
  Sex: Male
  Weight: 54 kg

DRUGS (5)
  1. NGENLA [Suspect]
     Active Substance: SOMATROGON-GHLA
     Indication: Growth hormone deficiency
     Dosage: 35 MG, WEEKLY
     Route: 058
     Dates: start: 20230605
  2. NGENLA [Suspect]
     Active Substance: SOMATROGON-GHLA
     Dosage: 35 MG, WEEKLY
     Route: 058
     Dates: start: 20250128
  3. PREDNISONE [Concomitant]
     Active Substance: PREDNISONE
     Indication: Duchenne muscular dystrophy
     Dosage: 20 MG, 1X/DAY
  4. PERINDOPRIL ARGININE [Concomitant]
     Active Substance: PERINDOPRIL ARGININE
     Indication: Duchenne muscular dystrophy
     Dosage: 5 MG, 1X/DAY
  5. CALCIUM [Concomitant]
     Active Substance: CALCIUM
     Indication: Duchenne muscular dystrophy
     Dosage: 500 MG, 1X/DAY

REACTIONS (2)
  - Myocardial infarction [Recovered/Resolved]
  - Spontaneous haematoma [Recovered/Resolved]

NARRATIVE: CASE EVENT DATE: 20250101
